FAERS Safety Report 15343321 (Version 2)
Quarter: 2018Q3

REPORT INFORMATION
  Report Type: Spontaneous
  Country: US (occurrence: US)
  Receive Date: 20180903
  Receipt Date: 20180903
  Transmission Date: 20181010
  Serious: Yes (Hospitalization, Other)
  Sender: FDA-Public Use
  Company Number: US-DRREDDYS-USA/USA/18/0103070

PATIENT
  Age: 39 Year
  Sex: Female

DRUGS (2)
  1. ACETYLSALICYLIC ACID [Concomitant]
     Active Substance: ASPIRIN
     Indication: AORTIC DILATATION
     Route: 065
     Dates: start: 2015
  2. CLOPIDOGREL BISULFATE. [Suspect]
     Active Substance: CLOPIDOGREL BISULFATE
     Indication: AORTIC DILATATION
     Route: 065
     Dates: start: 2015

REACTIONS (2)
  - Subarachnoid haemorrhage [Recovered/Resolved]
  - Drug level above therapeutic [Recovered/Resolved]
